FAERS Safety Report 11336518 (Version 5)
Quarter: 2019Q4

REPORT INFORMATION
  Report Type: Spontaneous
  Country: US (occurrence: US)
  Receive Date: 20150804
  Receipt Date: 20191216
  Transmission Date: 20200122
  Serious: Yes (Hospitalization, Other)
  Sender: FDA-Public Use
  Company Number: US-UCBSA-2015014912

PATIENT
  Age: 56 Year
  Sex: Female
  Weight: 54 kg

DRUGS (1)
  1. CIMZIA [Suspect]
     Active Substance: CERTOLIZUMAB PEGOL
     Indication: CROHN^S DISEASE
     Dosage: 400 MG, EV 2 WEEKS(QOW), LOADING DOSE
     Dates: start: 20150305, end: 20150402

REACTIONS (1)
  - Otitis externa [Recovering/Resolving]

NARRATIVE: CASE EVENT DATE: 201504
